FAERS Safety Report 8394532-1 (Version None)
Quarter: 2012Q2

REPORT INFORMATION
  Report Type: 
  Country: None (occurrence: None)
  Receive Date: 20120530
  Receipt Date: 20120525
  Transmission Date: 20120825
  Serious: Yes (Other)
  Sender: FDA-Public Use
  Company Number: PHHY2012JP045600

PATIENT

DRUGS (3)
  1. PROPOLIS [Interacting]
  2. NEORAL [Suspect]
     Indication: CROHN'S DISEASE
     Route: 048
  3. TAHEEBO [Interacting]

REACTIONS (2)
  - THERAPEUTIC RESPONSE DECREASED [None]
  - DRUG INTERACTION [None]
